FAERS Safety Report 6532727-X (Version None)
Quarter: 2009Q4

REPORT INFORMATION
  Report Type: 
  Country: None (occurrence: None)
  Receive Date: 20091231
  Receipt Date: 20091218
  Transmission Date: 20100525
  Serious: Yes (Other)
  Sender: FDA-Public Use
  Company Number: 003131

PATIENT
  Sex: Female
  Weight: 66 kg

DRUGS (6)
  1. CIMZIA [Suspect]
     Indication: CROHN'S DISEASE
     Dosage: (400 MG 1X/MONTH, MONTHLY SUBCUTANEOUS)
     Route: 058
     Dates: start: 20090812, end: 20091006
  2. REMICADE [Suspect]
     Indication: CROHN'S DISEASE
     Dosage: (400 MG, 11 INFUSIONS IN ALL INTRAVENOUS))
     Route: 042
     Dates: start: 20081030, end: 20090713
  3. PLAQUENIL /00072603/ [Concomitant]
  4. MEDROL [Concomitant]
  5. PRILOSEC [Concomitant]
  6. EFFEXOR XR [Concomitant]

REACTIONS (5)
  - ARTHRALGIA [None]
  - GAIT DISTURBANCE [None]
  - OEDEMA PERIPHERAL [None]
  - PAIN IN EXTREMITY [None]
  - SYSTEMIC LUPUS ERYTHEMATOSUS [None]
